FAERS Safety Report 23192525 (Version 1)
Quarter: 2023Q4

REPORT INFORMATION
  Report Type: Spontaneous
  Country: CN (occurrence: CN)
  Receive Date: 20231116
  Receipt Date: 20231116
  Transmission Date: 20240110
  Serious: Yes (Other)
  Sender: FDA-Public Use
  Company Number: CN-SA-SAC20231115000076

PATIENT
  Age: 72 Year
  Sex: Female
  Weight: 45 kg

DRUGS (2)
  1. OXALIPLATIN [Suspect]
     Active Substance: OXALIPLATIN
     Indication: Neoplasm
     Dosage: 50 MG, QD, 500 ML
     Route: 041
     Dates: start: 20231024, end: 20231024
  2. SODIUM CHLORIDE [Concomitant]
     Active Substance: SODIUM CHLORIDE
     Indication: Fluid replacement
     Route: 041
     Dates: start: 20231024, end: 20231024

REACTIONS (3)
  - Paralysis [Recovering/Resolving]
  - Hypoaesthesia [Recovering/Resolving]
  - Blood pressure increased [Recovering/Resolving]

NARRATIVE: CASE EVENT DATE: 20231024
